FAERS Safety Report 5820870-X (Version None)
Quarter: 2008Q3

REPORT INFORMATION
  Report Type: 
  Country: None (occurrence: None)
  Receive Date: 20080718
  Receipt Date: 20080718
  Transmission Date: 20090109
  Serious: No
  Sender: FDA-Public Use
  Company Number: None

PATIENT
  Sex: Male
  Weight: 86.1834 kg

DRUGS (3)
  1. TERBINAFINE  250MG  GLENMARK [Suspect]
     Indication: INFECTION
     Dosage: 250MG QD PO
     Route: 048
  2. BACTRIM [Concomitant]
  3. KEFLEX [Concomitant]

REACTIONS (1)
  - TOOTH DISCOLOURATION [None]
